FAERS Safety Report 6583231-4 (Version None)
Quarter: 2010Q1

REPORT INFORMATION
  Report Type: 
  Country: None (occurrence: None)
  Receive Date: 20100216
  Receipt Date: 20100202
  Transmission Date: 20100710
  Serious: Yes (Hospitalization)
  Sender: FDA-Public Use
  Company Number: GR-CELGENEUS-066-21880-10020226

PATIENT
  Sex: Female
  Weight: 82 kg

DRUGS (2)
  1. REVLIMID [Suspect]
     Indication: MULTIPLE MYELOMA
     Route: 048
     Dates: start: 20100120, end: 20100129
  2. DEXAMETHASONE [Suspect]
     Indication: MULTIPLE MYELOMA
     Route: 051
     Dates: start: 20100120, end: 20100129

REACTIONS (2)
  - NEPHROTIC SYNDROME [None]
  - TOOTH ABSCESS [None]
